FAERS Safety Report 6040107-9 (Version None)
Quarter: 2009Q1

REPORT INFORMATION
  Report Type: 
  Country: None (occurrence: None)
  Receive Date: 20090116
  Receipt Date: 20071231
  Transmission Date: 20090719
  Serious: No
  Sender: FDA-Public Use
  Company Number: US-BRISTOL-MYERS SQUIBB COMPANY-14013536

PATIENT
  Age: 72 Year
  Sex: Female

DRUGS (4)
  1. ABILIFY [Suspect]
     Indication: BIPOLAR DISORDER
     Route: 048
     Dates: start: 20041101
  2. PARNATE [Concomitant]
  3. LITHIUM [Concomitant]
  4. TEGRETOL [Concomitant]

REACTIONS (1)
  - TARDIVE DYSKINESIA [None]
